FAERS Safety Report 9733182 (Version 2)
Quarter: 2013Q4

REPORT INFORMATION
  Report Type: Spontaneous
  Country: US (occurrence: US)
  Receive Date: 20131205
  Receipt Date: 20131205
  Transmission Date: 20140711
  Serious: Yes (Hospitalization)
  Sender: FDA-Public Use
  Company Number: US-JNJFOC-20130915848

PATIENT
  Age: 42 Year
  Sex: Female
  Weight: 85 kg

DRUGS (14)
  1. REMICADE [Suspect]
     Indication: CROHN^S DISEASE
     Dosage: INFUSION START: 10:06 AM; INFUSION FINISHED: 11:45 AM
     Route: 042
     Dates: start: 20130923, end: 20130923
  2. PHENERGAN [Suspect]
     Indication: PREMEDICATION
     Dosage: RECEIVED AT 10:00 AM
     Route: 042
     Dates: start: 20130923
  3. NEURONTIN [Concomitant]
     Route: 065
  4. ADDERALL [Concomitant]
     Route: 065
  5. TIZANIDINE [Concomitant]
     Route: 065
  6. WELLBUTRIN [Concomitant]
     Route: 065
  7. ZOLOFT [Concomitant]
     Route: 065
  8. SINGULAIR [Concomitant]
     Route: 065
  9. MULTIVITAMINS [Concomitant]
     Route: 065
  10. CLONAZEPAM [Concomitant]
     Route: 065
  11. LORTAB [Concomitant]
     Dosage: DOSE: ^7.5-500 MG^ [SIC]
     Route: 065
  12. SOLUMEDROL (METHYLPREDNISOLONE SODIUM SUCCINATE) [Concomitant]
     Indication: PREMEDICATION
     Dosage: RECEIVED AT 10:00 AM
     Route: 042
     Dates: start: 20130923
  13. TYLENOL [Concomitant]
     Indication: PREMEDICATION
     Dosage: RECEIVED AT 10:00 AM
     Route: 048
     Dates: start: 20130923
  14. BENADRYL [Concomitant]
     Indication: PREMEDICATION
     Dosage: RECEIVED AT 10:00 AM
     Route: 048
     Dates: start: 20130923

REACTIONS (5)
  - Cellulitis [Recovering/Resolving]
  - Thrombosis [Unknown]
  - Muscle spasms [Unknown]
  - Hypoaesthesia [Unknown]
  - Discomfort [Unknown]
